FAERS Safety Report 18080389 (Version 1)
Quarter: 2020Q3

REPORT INFORMATION
  Report Type: Spontaneous
  Country: US (occurrence: US)
  Receive Date: 20200728
  Receipt Date: 20200728
  Transmission Date: 20201103
  Serious: No
  Sender: FDA-Public Use
  Company Number: None

PATIENT
  Age: 31 Year
  Sex: Female

DRUGS (5)
  1. ELDERBERRY [Concomitant]
     Active Substance: HERBALS
  2. LOSARTAN. [Concomitant]
     Active Substance: LOSARTAN
  3. ELURYNG [Suspect]
     Active Substance: ETHINYL ESTRADIOL\ETONOGESTREL
     Indication: CONTRACEPTION
     Dosage: ?          QUANTITY:3 RINGS;OTHER FREQUENCY:MONTHLY;?
     Route: 067
     Dates: start: 20200629, end: 20200726
  4. ZYRTEC [Concomitant]
     Active Substance: CETIRIZINE HYDROCHLORIDE
  5. VITAMINS [Concomitant]
     Active Substance: VITAMINS

REACTIONS (8)
  - Depression [None]
  - Product substitution issue [None]
  - Anxiety [None]
  - Vulvovaginal burning sensation [None]
  - Vaginal discharge [None]
  - Vulvovaginal discomfort [None]
  - Pruritus [None]
  - Irritability [None]
